FAERS Safety Report 18605214 (Version 2)
Quarter: 2021Q2

REPORT INFORMATION
  Report Type: Spontaneous
  Country: US (occurrence: US)
  Receive Date: 20201211
  Receipt Date: 20210527
  Transmission Date: 20210717
  Serious: No
  Sender: FDA-Public Use
  Company Number: US-SA-2020SA355040

PATIENT
  Age: 64 Year
  Sex: Female

DRUGS (2)
  1. DUPIXENT [Suspect]
     Active Substance: DUPILUMAB
     Indication: DERMATITIS ATOPIC
     Dosage: 600 MG, 1X
     Route: 058
     Dates: start: 202011, end: 202011
  2. DUPIXENT [Suspect]
     Active Substance: DUPILUMAB
     Dosage: 300 MG, QOW
     Route: 058
     Dates: start: 2020

REACTIONS (7)
  - Dry skin [Unknown]
  - Bronchitis [Recovering/Resolving]
  - Arthritis [Unknown]
  - Back pain [Unknown]
  - Pruritus [Unknown]
  - Gait disturbance [Unknown]
  - Sleep disorder [Unknown]

NARRATIVE: CASE EVENT DATE: 202012
